FAERS Safety Report 24092717 (Version 1)
Quarter: 2024Q3

REPORT INFORMATION
  Report Type: Spontaneous
  Country: JP (occurrence: JP)
  Receive Date: 20240715
  Receipt Date: 20240715
  Transmission Date: 20241017
  Serious: Yes (Hospitalization)
  Sender: BOEHRINGER INGELHEIM
  Company Number: JP-NBI-2024-BI-038916

PATIENT
  Age: 0 Year
  Sex: Male
  Weight: 2.34 kg

DRUGS (3)
  1. OFEV [Suspect]
     Active Substance: NINTEDANIB
     Indication: Pulmonary fibrosis
     Route: 048
  2. OFEV [Suspect]
     Active Substance: NINTEDANIB
     Indication: Scleroderma
  3. TADALAFIL [Concomitant]
     Active Substance: TADALAFIL
     Indication: Peripheral circulatory failure

REACTIONS (1)
  - Low birth weight baby [Unknown]
